FAERS Safety Report 13264276 (Version 1)
Quarter: 2017Q1

REPORT INFORMATION
  Report Type: Spontaneous
  Country: US (occurrence: US)
  Receive Date: 20170223
  Receipt Date: 20170223
  Transmission Date: 20170428
  Serious: Yes (Hospitalization)
  Sender: FDA-Public Use
  Company Number: None

PATIENT
  Age: 76 Year
  Sex: Female
  Weight: 60 kg

DRUGS (2)
  1. NAB-PACLITAXEL [Suspect]
     Active Substance: PACLITAXEL
     Dosage: 28DAYCYCLE IV
     Route: 042
     Dates: start: 20170125, end: 20170201
  2. GEMCITABINE [Suspect]
     Active Substance: GEMCITABINE\GEMCITABINE HYDROCHLORIDE
     Dosage: 28DAYCYCLE IV
     Route: 042
     Dates: start: 20170125, end: 20170201

REACTIONS (5)
  - Neutropenia [None]
  - Tachycardia [None]
  - Pyrexia [None]
  - Dysphagia [None]
  - Gastrooesophageal reflux disease [None]

NARRATIVE: CASE EVENT DATE: 20170206
